FAERS Safety Report 7530825-5 (Version None)
Quarter: 2011Q2

REPORT INFORMATION
  Report Type: 
  Country: None (occurrence: None)
  Receive Date: 20110607
  Receipt Date: 20110525
  Transmission Date: 20111010
  Serious: Yes (Life-Threatening)
  Sender: FDA-Public Use
  Company Number: DE-MYLANLABS-2011S1010739

PATIENT
  Age: 80 Year
  Sex: Female
  Weight: 65 kg

DRUGS (15)
  1. ISOSORBIDE DINITRATE [Concomitant]
     Indication: HYPERTENSION
     Dosage: 0-0-1/2
     Dates: start: 20050401
  2. OLMESARTAN MEDOXOMIL AND HYDROCHLOROTHIZIDE [Concomitant]
     Indication: HYPERTENSION
     Dosage: 1-0-0
     Dates: start: 20070101
  3. L-THYROX [Concomitant]
     Indication: GOITRE
     Dosage: 1/2-0-0
     Dates: start: 20080201
  4. VALPROAT CHRONO [Concomitant]
     Indication: SYNCOPE
     Dosage: 0-0-1
  5. BROMAZEPAM [Concomitant]
     Indication: INSOMNIA
     Dosage: 0-0-1/4
     Dates: start: 20090601
  6. BISOPROLOL FUMARATE [Concomitant]
     Indication: PRODUCT USED FOR UNKNOWN INDICATION
     Dosage: 2X1/2 --} 1/2-0-0
     Dates: start: 20070901
  7. RAMIPRIL [Concomitant]
     Indication: HYPERTENSION
     Dosage: 2X1/2
     Dates: start: 20061201
  8. FUROSEMIDE [Concomitant]
     Dosage: 1/4-0-0
     Dates: start: 20100501
  9. OPIPRAMOL [Concomitant]
     Indication: PRODUCT USED FOR UNKNOWN INDICATION
     Dates: start: 20100801, end: 20100901
  10. DEKRISTOL [Concomitant]
     Indication: PRODUCT USED FOR UNKNOWN INDICATION
  11. MARCUMAR [Interacting]
     Indication: ATRIAL FIBRILLATION
     Dates: start: 20080401
  12. FUROSEMIDE [Concomitant]
     Indication: OEDEMA PERIPHERAL
     Dosage: 1/4-1/4-0
     Dates: start: 20100301
  13. DOXEPIN [Concomitant]
     Indication: INSOMNIA
     Dosage: 0-0-1/2
     Dates: start: 20100801
  14. ALENDRONATE SODIUM [Suspect]
     Indication: PRODUCT USED FOR UNKNOWN INDICATION
     Dosage: DAILY DOSE: 70 MG MILLGRAM(S) EVERY WEEKS
     Dates: start: 20101001
  15. AMLODIPINE [Concomitant]
     Indication: HYPERTENSION
     Dosage: 1-0-0
     Dates: start: 20070601

REACTIONS (2)
  - DRUG INTERACTION [None]
  - DRUG EFFECT INCREASED [None]
